FAERS Safety Report 9057489 (Version 1)
Quarter: 2013Q1

REPORT INFORMATION
  Report Type: Spontaneous
  Country: US (occurrence: None)
  Receive Date: 20130204
  Receipt Date: 20130204
  Transmission Date: 20140127
  Serious: No
  Sender: FDA-Public Use
  Company Number: None

PATIENT
  Age: 66 Year
  Sex: Female
  Weight: 53.52 kg

DRUGS (2)
  1. METOPROLOL SUCCINATE [Suspect]
     Indication: BLOOD PRESSURE ABNORMAL
     Dates: start: 20130105, end: 20130115
  2. METOPROLOL SUCCINATE [Suspect]
     Indication: HEART RATE ABNORMAL
     Dates: start: 20130105, end: 20130115

REACTIONS (1)
  - Blood pressure abnormal [None]
